FAERS Safety Report 16890385 (Version 3)
Quarter: 2019Q4

REPORT INFORMATION
  Report Type: Spontaneous
  Country: ES (occurrence: ES)
  Receive Date: 20191007
  Receipt Date: 20191209
  Transmission Date: 20200122
  Serious: Yes (Hospitalization, Other)
  Sender: FDA-Public Use
  Company Number: ES-AUROBINDO-AUR-APL-2019-065020

PATIENT
  Age: 71 Year
  Sex: Female

DRUGS (5)
  1. ALENDRONIC ACID TABLETS [Suspect]
     Active Substance: ALENDRONIC ACID
     Indication: OSTEOPOROSIS
     Dosage: 70 MILLIGRAM, EVERY WEEK
     Route: 048
  2. CALCIFEDIOL [Suspect]
     Active Substance: CALCIFEDIOL
     Indication: OSTEOARTHRITIS
     Dosage: UNK
     Route: 065
  3. ACETAMINOPHEN. [Suspect]
     Active Substance: ACETAMINOPHEN
     Indication: OSTEOPOROSIS
     Dosage: UNK
     Route: 065
  4. PARACETAMOL [Suspect]
     Active Substance: ACETAMINOPHEN
     Indication: OSTEOARTHRITIS
     Dosage: UNK
     Route: 065
  5. CALCIFEDIOL [Suspect]
     Active Substance: CALCIFEDIOL
     Indication: OSTEOPOROSIS

REACTIONS (7)
  - Femur fracture [Unknown]
  - Pain [Unknown]
  - Joint injury [Unknown]
  - Fall [Unknown]
  - Gait inability [Unknown]
  - Balance disorder [Unknown]
  - Pathological fracture [Unknown]
